FAERS Safety Report 23695412 (Version 1)
Quarter: 2024Q2

REPORT INFORMATION
  Report Type: Spontaneous
  Country: US (occurrence: None)
  Receive Date: 20240402
  Receipt Date: 20240402
  Transmission Date: 20240716
  Serious: No
  Sender: FDA-Public Use
  Company Number: 2024A056307

PATIENT
  Age: 24262 Day
  Sex: Female

DRUGS (1)
  1. BYDUREON BCISE [Suspect]
     Active Substance: EXENATIDE

REACTIONS (6)
  - Erythema [Unknown]
  - Incorrect dose administered by device [Unknown]
  - Drug dose omission by device [Unknown]
  - Device use issue [Unknown]
  - Device delivery system issue [Unknown]
  - Device leakage [Unknown]

NARRATIVE: CASE EVENT DATE: 20240212
